FAERS Safety Report 12680073 (Version 1)
Quarter: 2016Q3

REPORT INFORMATION
  Report Type: Spontaneous
  Country: US (occurrence: US)
  Receive Date: 20160824
  Receipt Date: 20160824
  Transmission Date: 20161109
  Serious: No
  Sender: FDA-Public Use
  Company Number: US-GLAXOSMITHKLINE-CHPA2016US002622

PATIENT
  Age: 73 Year
  Sex: Male

DRUGS (5)
  1. METFORMIN PROLONGED-RELEASE TABLET [Concomitant]
     Indication: DIABETES MELLITUS
     Dosage: UNK
     Route: 048
  2. EXCEDRIN MIGRAINE [Suspect]
     Active Substance: ACETAMINOPHEN\ASPIRIN\CAFFEINE
     Dosage: 1 DF, QD
     Route: 048
  3. EXCEDRIN MIGRAINE [Suspect]
     Active Substance: ACETAMINOPHEN\ASPIRIN\CAFFEINE
     Indication: BLOOD GLUCOSE ABNORMAL
  4. EXCEDRIN MIGRAINE [Suspect]
     Active Substance: ACETAMINOPHEN\ASPIRIN\CAFFEINE
     Indication: HEADACHE
  5. INSULIN SOLUTION FOR INJECTION [Concomitant]
     Indication: DIABETES MELLITUS
     Dosage: UNK
     Route: 058

REACTIONS (2)
  - Product use issue [Unknown]
  - Therapeutic response unexpected [Unknown]
